FAERS Safety Report 10437721 (Version 1)
Quarter: 2014Q3

REPORT INFORMATION
  Report Type: Spontaneous
  Country: US (occurrence: US)
  Receive Date: 20140908
  Receipt Date: 20140908
  Transmission Date: 20150326
  Serious: No
  Sender: FDA-Public Use
  Company Number: US-BRISTOL-MYERS SQUIBB COMPANY-19757798

PATIENT
  Age: 8 Year
  Sex: Male
  Weight: 32.65 kg

DRUGS (2)
  1. ABILIFY [Suspect]
     Active Substance: ARIPIPRAZOLE
     Indication: BIPOLAR DISORDER
     Dosage: ABILIFY 2.5 MG IN THE MORNING AND 5 MG IN THE EVENING
     Dates: start: 201302
  2. ABILIFY [Suspect]
     Active Substance: ARIPIPRAZOLE
     Indication: ATTENTION DEFICIT/HYPERACTIVITY DISORDER
     Dosage: ABILIFY 2.5 MG IN THE MORNING AND 5 MG IN THE EVENING
     Dates: start: 201302

REACTIONS (1)
  - Wrong technique in drug usage process [Unknown]
